FAERS Safety Report 17864500 (Version 1)
Quarter: 2020Q2

REPORT INFORMATION
  Report Type: Spontaneous
  Country: US (occurrence: US)
  Receive Date: 20200604
  Receipt Date: 20200604
  Transmission Date: 20200714
  Serious: No
  Sender: FDA-Public Use
  Company Number: None

PATIENT
  Sex: Male
  Weight: 110.5 kg

DRUGS (3)
  1. DEXAMETHASONE (34521) [Suspect]
     Active Substance: DEXAMETHASONE
     Dates: end: 20170815
  2. LENALIDOMIDE (CC-5013) [Suspect]
     Active Substance: LENALIDOMIDE
     Dates: end: 20180815
  3. VELCADE [Suspect]
     Active Substance: BORTEZOMIB
     Dates: end: 20170814

REACTIONS (2)
  - Lymphadenopathy [None]
  - Precursor T-lymphoblastic lymphoma/leukaemia [None]

NARRATIVE: CASE EVENT DATE: 20180815
